FAERS Safety Report 7422654-8 (Version None)
Quarter: 2011Q2

REPORT INFORMATION
  Report Type: 
  Country: None (occurrence: None)
  Receive Date: 20110414
  Receipt Date: 20110414
  Transmission Date: 20111010
  Serious: Yes (Hospitalization)
  Sender: FDA-Public Use
  Company Number: None

PATIENT
  Age: 71 Year
  Sex: Male

DRUGS (1)
  1. LOSARTAN POTASSIUM [Suspect]
     Dosage: 50 MG EVERY DAY PO
     Route: 048
     Dates: start: 20110113, end: 20110114

REACTIONS (2)
  - SPEECH DISORDER [None]
  - ANGIOEDEMA [None]
